FAERS Safety Report 8917825 (Version 2)
Quarter: 2013Q2

REPORT INFORMATION
  Report Type: Spontaneous
  Country: US (occurrence: US)
  Receive Date: 20121120
  Receipt Date: 20130604
  Transmission Date: 20140414
  Serious: No
  Sender: FDA-Public Use
  Company Number: US-ASTRAZENECA-2011SE33173

PATIENT
  Age: 59 Year
  Sex: Female
  Weight: 90.7 kg

DRUGS (37)
  1. NEXIUM [Suspect]
     Indication: GASTROOESOPHAGEAL REFLUX DISEASE
     Route: 048
     Dates: start: 2001
  2. SEROQUEL [Suspect]
     Indication: MENTAL DISORDER
     Dosage: LOW DOSE
     Route: 048
     Dates: start: 2002
  3. SEROQUEL [Suspect]
     Indication: SCHIZOPHRENIA
     Dosage: LOW DOSE
     Route: 048
     Dates: start: 2002
  4. SEROQUEL [Suspect]
     Indication: MENTAL DISORDER
     Dosage: LOW DOSE
     Route: 048
     Dates: start: 2002
  5. SEROQUEL [Suspect]
     Indication: MENTAL DISORDER
     Route: 048
  6. SEROQUEL [Suspect]
     Indication: SCHIZOPHRENIA
     Route: 048
  7. SEROQUEL [Suspect]
     Indication: MENTAL DISORDER
     Route: 048
  8. SEROQUEL [Suspect]
     Indication: MENTAL DISORDER
     Dosage: 100 MG TWICE DURING DAY AND 400 MG ONCE DURING THE DAY MAKIN TOTAL 600 MG
     Route: 048
     Dates: start: 2002
  9. SEROQUEL [Suspect]
     Indication: SCHIZOPHRENIA
     Dosage: 100 MG TWICE DURING DAY AND 400 MG ONCE DURING THE DAY MAKIN TOTAL 600 MG
     Route: 048
     Dates: start: 2002
  10. SEROQUEL [Suspect]
     Indication: MENTAL DISORDER
     Dosage: 100 MG TWICE DURING DAY AND 400 MG ONCE DURING THE DAY MAKIN TOTAL 600 MG
     Route: 048
     Dates: start: 2002
  11. SEROQUEL [Suspect]
     Indication: MENTAL DISORDER
     Route: 048
  12. SEROQUEL [Suspect]
     Indication: SCHIZOPHRENIA
     Route: 048
  13. SEROQUEL [Suspect]
     Indication: MENTAL DISORDER
     Route: 048
  14. ALLEGRA [Concomitant]
     Indication: MULTIPLE ALLERGIES
  15. TRIAMTERENE HCTZ [Concomitant]
     Indication: HYPERTENSION
     Dosage: 75/50 ONCE IN THE MORNING
  16. TRIAMTERENE HCTZ [Concomitant]
     Indication: FLUID RETENTION
     Dosage: 75/50 ONCE IN THE MORNING
  17. DIAZEPAM [Concomitant]
     Indication: NERVOUSNESS
  18. LEVOTHYROXINE [Concomitant]
     Indication: HYPOTHYROIDISM
  19. PROAIR [Concomitant]
     Indication: ASTHMA
  20. HYDROXYZINE [Concomitant]
     Indication: HYPERSENSITIVITY
  21. POTASSIUM [Concomitant]
  22. AMLODIPINE [Concomitant]
     Indication: HYPERTENSION
  23. PRAVASTATIN [Concomitant]
     Indication: BLOOD CHOLESTEROL
  24. ESTRADIOL [Concomitant]
  25. ESTRADIOL [Concomitant]
  26. SUMATRIPTAN [Concomitant]
     Indication: MIGRAINE
  27. SINGULAIR [Concomitant]
  28. BUPROPION [Concomitant]
  29. BETASERON [Concomitant]
  30. PROVIGIL [Concomitant]
  31. TRAMADOL [Concomitant]
  32. ACYCLOVIR [Concomitant]
  33. TIZANIDINE [Concomitant]
  34. ALLERGY INJECTIONS [Concomitant]
  35. NASONEX [Concomitant]
  36. EFFEXOR XR [Concomitant]
  37. METFORMIN [Concomitant]
     Indication: DIABETES MELLITUS

REACTIONS (2)
  - Diabetes mellitus [Not Recovered/Not Resolved]
  - Sleep disorder [Unknown]
